FAERS Safety Report 8274729-1 (Version None)
Quarter: 2012Q2

REPORT INFORMATION
  Report Type: 
  Country: None (occurrence: None)
  Receive Date: 20120411
  Receipt Date: 20120402
  Transmission Date: 20120825
  Serious: Yes (Hospitalization, Disabling)
  Sender: FDA-Public Use
  Company Number: US-MERCK-1109USA01183

PATIENT
  Age: 55 Year
  Sex: Female

DRUGS (2)
  1. ALENDRONATE SODIUM [Suspect]
     Route: 048
     Dates: start: 20100501
  2. FOSAMAX [Suspect]
     Route: 048
     Dates: start: 20010401

REACTIONS (18)
  - OSTEOARTHRITIS [None]
  - INTERVERTEBRAL DISC PROTRUSION [None]
  - BACK PAIN [None]
  - STRESS FRACTURE [None]
  - FALL [None]
  - FRACTURE NONUNION [None]
  - FEMUR FRACTURE [None]
  - FOOT FRACTURE [None]
  - IMPAIRED HEALING [None]
  - SPONDYLOLISTHESIS [None]
  - DIABETES MELLITUS [None]
  - URINARY RETENTION [None]
  - RADIUS FRACTURE [None]
  - ANAEMIA POSTOPERATIVE [None]
  - RADICULOPATHY [None]
  - OSTEOPOROSIS [None]
  - LOW TURNOVER OSTEOPATHY [None]
  - HYPERTENSION [None]
